FAERS Safety Report 15015008 (Version 1)
Quarter: 2018Q2

REPORT INFORMATION
  Report Type: Spontaneous
  Country: US (occurrence: US)
  Receive Date: 20180615
  Receipt Date: 20180615
  Transmission Date: 20180711
  Serious: Yes (Death, Other)
  Sender: FDA-Public Use
  Company Number: US-ALKEM LABORATORIES LIMITED-US-ALKEM-2018-04194

PATIENT
  Age: 25 Year
  Sex: Male

DRUGS (6)
  1. CHLORPROMAZINE. [Suspect]
     Active Substance: CHLORPROMAZINE
     Indication: PRODUCT USED FOR UNKNOWN INDICATION
     Dosage: 75 MG, UNK
     Route: 048
  2. OLANZAPINE. [Suspect]
     Active Substance: OLANZAPINE
     Indication: AGITATION
     Dosage: 10 MG, UNK
     Route: 030
  3. PHENOXYMETHYLPENICILLIN BENZATHINE [Concomitant]
     Active Substance: PENICILLIN
     Indication: PRODUCT USED FOR UNKNOWN INDICATION
     Dosage: UNK
     Route: 065
  4. BENZODIAZEPINE [Concomitant]
     Active Substance: BENZODIAZEPINE
     Indication: PRODUCT USED FOR UNKNOWN INDICATION
     Dosage: UNK
     Route: 065
  5. OLANZAPINE. [Suspect]
     Active Substance: OLANZAPINE
     Dosage: UNK
     Route: 048
  6. CLONAZEPAM. [Suspect]
     Active Substance: CLONAZEPAM
     Indication: PRODUCT USED FOR UNKNOWN INDICATION
     Dosage: 2 MG, UNK
     Route: 048

REACTIONS (1)
  - Asthma [Fatal]
